FAERS Safety Report 4473878-3 (Version None)
Quarter: 2004Q4

REPORT INFORMATION
  Report Type: 
  Country: None (occurrence: None)
  Receive Date: 20041008
  Receipt Date: 20041008
  Transmission Date: 20050328
  Serious: Yes (Other)
  Sender: FDA-Public Use
  Company Number: None

PATIENT

DRUGS (2)
  1. STRATTERA [Suspect]
     Indication: ATTENTION DEFICIT/HYPERACTIVITY DISORDER
     Dosage: 1 PO BID
     Route: 048
  2. STRATTERA [Suspect]
     Indication: DEPRESSION
     Dosage: 1 PO BID
     Route: 048

REACTIONS (3)
  - HYPOACUSIS [None]
  - OEDEMA MOUTH [None]
  - SWOLLEN TONGUE [None]
